FAERS Safety Report 12171318 (Version 2)
Quarter: 2016Q4

REPORT INFORMATION
  Report Type: Spontaneous
  Country: US (occurrence: US)
  Receive Date: 20160311
  Receipt Date: 20161221
  Transmission Date: 20170207
  Serious: No
  Sender: FDA-Public Use
  Company Number: US-PFIZER INC-2016139623

PATIENT
  Age: 71 Year
  Sex: Female

DRUGS (15)
  1. DOCQLACE [Concomitant]
     Active Substance: DOCUSATE SODIUM
     Dosage: 100 MG, AS NEEDED (2XDAILY)
  2. K-10 [Concomitant]
     Dosage: 10 MG, AS NEEDED (1 DAILY)
  3. ATENOLOL. [Concomitant]
     Active Substance: ATENOLOL
     Dosage: 25 MG, DAILY, (1 DAILY)
  4. PRESERVISION AREDS [Concomitant]
     Active Substance: MINERALS\VITAMINS
     Indication: MACULAR DEGENERATION
     Dosage: UNK UNK, 2X/DAY
  5. VITAMIN D3 [Concomitant]
     Active Substance: CHOLECALCIFEROL
     Indication: BONE DISORDER
     Dosage: 1000 IU, 1X/DAY
  6. PLAVIX [Concomitant]
     Active Substance: CLOPIDOGREL BISULFATE
     Dosage: 75 MG, DAILY
  7. PROTONIX /00661201/ [Concomitant]
     Active Substance: OMEPRAZOLE
     Indication: GASTRIC ULCER
     Dosage: 40 MG, 1X/DAY
  8. RANITIDINE. [Concomitant]
     Active Substance: RANITIDINE
     Indication: GASTRIC ULCER
     Dosage: 300 MG, 1X/DAY (1 TAB AT NIGHT)
  9. ASPIRIN. [Concomitant]
     Active Substance: ASPIRIN
     Dosage: 325 MG, DAILY
  10. OMEGA 3 [Concomitant]
     Active Substance: OMEGA-3 FATTY ACIDS
     Dosage: 1000 MG, DAILY (1-2 DAILY)
  11. SUPER B-COMPLEX VITAMINS [Concomitant]
     Indication: SUPPLEMENTATION THERAPY
     Dosage: 1 DF, DAILY
  12. BUMEX [Concomitant]
     Active Substance: BUMETANIDE
     Indication: SWELLING
     Dosage: 2 MG, AS NEEDED (1 DAILY )
  13. DETROL LA [Suspect]
     Active Substance: TOLTERODINE TARTRATE
     Dosage: 2 MG, 2X/DAY
     Route: 048
  14. DEPO-ESTRADIOL [Suspect]
     Active Substance: ESTRADIOL CYPIONATE
     Dosage: 1.5 ML, MONTHLY, (5 MG/ML-5 ML/VIAL)(ONE INJECTION EVERY MONTH)
  15. NORCO [Concomitant]
     Active Substance: ACETAMINOPHEN\HYDROCODONE BITARTRATE
     Dosage: 1 DF, 4X/DAY, [HYDROCODONE BITARTRATE-10 MG] / [PARACETAMOL-325 MG] (1 TAB EVERY 6 HRS)

REACTIONS (3)
  - Malaise [Unknown]
  - Nasopharyngitis [Unknown]
  - Influenza [Unknown]
